FAERS Safety Report 5018037-0 (Version None)
Quarter: 2006Q2

REPORT INFORMATION
  Report Type: 
  Country: None (occurrence: None)
  Receive Date: 20060530
  Receipt Date: 20060309
  Transmission Date: 20061013
  Serious: Yes (Hospitalization)
  Sender: FDA-Public Use
  Company Number: 2005043358

PATIENT
  Age: 40 Year
  Sex: Male
  Weight: 70 kg

DRUGS (4)
  1. LYRICA [Suspect]
     Indication: NEURALGIA
     Dosage: 150 MG (50 MG, 3 IN 1 D), ORAL
     Route: 048
     Dates: start: 20041125, end: 20041208
  2. DOSULEPIN (DOSULEPIN) [Suspect]
     Indication: DEPRESSION
     Dosage: 50 MG, ORAL
     Route: 048
     Dates: start: 20041203
  3. DIAZEPAM [Concomitant]
  4. TEMAZEPAM [Concomitant]

REACTIONS (5)
  - DIPLOPIA [None]
  - DRY MOUTH [None]
  - HEART RATE INCREASED [None]
  - TREMOR [None]
  - VISION BLURRED [None]
